FAERS Safety Report 8031929-3 (Version None)
Quarter: 2012Q1

REPORT INFORMATION
  Report Type: 
  Country: None (occurrence: None)
  Receive Date: 20120109
  Receipt Date: 20111206
  Transmission Date: 20120608
  Serious: No
  Sender: FDA-Public Use
  Company Number: US-ABBOTT-11P-163-0881620-00

PATIENT
  Sex: Female

DRUGS (6)
  1. VICODIN [Suspect]
     Indication: BACK PAIN
  2. FIORICET [Suspect]
     Indication: PRODUCT USED FOR UNKNOWN INDICATION
     Dosage: 50/325/40MG UP TO THREE TIMES A DAY
  3. MOTRIN [Suspect]
  4. VICODIN [Concomitant]
  5. PROZAC [Suspect]
     Indication: PRODUCT USED FOR UNKNOWN INDICATION
  6. MOTRIN [Suspect]
     Indication: PRODUCT USED FOR UNKNOWN INDICATION

REACTIONS (1)
  - DRUG INEFFECTIVE [None]
